FAERS Safety Report 16688389 (Version 2)
Quarter: 2019Q3

REPORT INFORMATION
  Report Type: Spontaneous
  Country: US (occurrence: US)
  Receive Date: 20190809
  Receipt Date: 20190912
  Transmission Date: 20191004
  Serious: Yes (Death, Hospitalization, Other)
  Sender: FDA-Public Use
  Company Number: US-PARI RESPIRATORY EQUIPMENT, INC.-2019PAR00073

PATIENT
  Age: 56 Year
  Sex: Male

DRUGS (5)
  1. KITABIS PAK [Suspect]
     Active Substance: TOBRAMYCIN
     Indication: LOWER RESPIRATORY TRACT INFECTION
  2. CAYSTON [Concomitant]
     Active Substance: AZTREONAM
     Dosage: ALTERNATING EVERY 28 DAYS
  3. AZATHIOPRINE. [Concomitant]
     Active Substance: AZATHIOPRINE
  4. KITABIS PAK [Suspect]
     Active Substance: TOBRAMYCIN
     Indication: BRONCHIECTASIS
     Dosage: 5 ML, 2X/DAY FOR 28 DAYS
  5. POSACONAZOLE [Concomitant]
     Active Substance: POSACONAZOLE

REACTIONS (6)
  - Product use in unapproved indication [Recovered/Resolved]
  - Urinary tract infection pseudomonal [Unknown]
  - Pneumonia pseudomonal [Fatal]
  - Sepsis [Fatal]
  - Acute kidney injury [Fatal]
  - Infection [Not Recovered/Not Resolved]

NARRATIVE: CASE EVENT DATE: 2019
